FAERS Safety Report 8449775-5 (Version None)
Quarter: 2012Q2

REPORT INFORMATION
  Report Type: 
  Country: None (occurrence: None)
  Receive Date: 20120620
  Receipt Date: 20120612
  Transmission Date: 20120825
  Serious: Yes (Hospitalization)
  Sender: FDA-Public Use
  Company Number: US-BAYER-2012-059574

PATIENT
  Age: 38 Year
  Sex: Female

DRUGS (13)
  1. BORIC ACID [Concomitant]
     Dosage: 1 PV (PER VAGINA)
     Dates: start: 20080602
  2. VICODIN [Concomitant]
  3. FLUCONAZOLE [Concomitant]
     Dosage: 150 MG/WEEKLY
  4. YASMIN [Suspect]
  5. DROSPIRENONE AND ETHINYL ESTRADIOL [Suspect]
  6. AZITHROMYCIN [Concomitant]
     Dosage: 250 MG, UNK
     Dates: start: 20080501
  7. LEVAQUIN [Concomitant]
     Indication: INFECTION
     Dosage: 500 MG, DAILY
     Dates: start: 20080710
  8. MUCINEX [Concomitant]
  9. ZOLOFT [Concomitant]
     Indication: DEPRESSION
     Dosage: 50 MG, DAILY
  10. HYDROCODONE W/HOMATROPINE [Concomitant]
     Dosage: 1 TEASPOON/EVERY 4-6 HOURS AS NEEDED
  11. SUDAFED 12 HOUR [Concomitant]
  12. SERTRALINE HYDROCHLORIDE [Concomitant]
     Indication: DEPRESSION
     Dosage: 50 MG, DAILY
  13. METRONIDAZOLE [Concomitant]
     Indication: VAGINITIS BACTERIAL
     Dosage: 500 MG, BID
     Dates: start: 20080602

REACTIONS (1)
  - PORTAL VEIN THROMBOSIS [None]
